FAERS Safety Report 23854106 (Version 3)
Quarter: 2024Q2

REPORT INFORMATION
  Report Type: Spontaneous
  Country: US (occurrence: US)
  Receive Date: 20240514
  Receipt Date: 20240628
  Transmission Date: 20240716
  Serious: No
  Sender: FDA-Public Use
  Company Number: US-BRISTOL-MYERS SQUIBB COMPANY-2024-074209

PATIENT
  Age: 77 Year
  Sex: Female

DRUGS (4)
  1. POMALYST [Suspect]
     Active Substance: POMALIDOMIDE
     Indication: Plasma cell myeloma
     Route: 048
     Dates: start: 20230419
  2. POMALYST [Suspect]
     Active Substance: POMALIDOMIDE
     Route: 048
     Dates: start: 202104
  3. POMALYST [Suspect]
     Active Substance: POMALIDOMIDE
     Dosage: 1 TIME A DAY FOR 21 DAYS ON AND 7DAYS OFF.
     Route: 048
  4. NINLARO [Concomitant]
     Active Substance: IXAZOMIB CITRATE
     Indication: Product used for unknown indication
     Dosage: 1 CAPSULE BY MOUTH EVERY 7 DAYS FOR 21 DAYS ON THEN 7 DAYS OFF
     Route: 048

REACTIONS (10)
  - Diarrhoea [Unknown]
  - Incontinence [Unknown]
  - Back pain [Unknown]
  - Hypoaesthesia [Unknown]
  - Dry skin [Unknown]
  - Skin exfoliation [Unknown]
  - Paraesthesia [Unknown]
  - Burning sensation [Unknown]
  - Pain in extremity [Unknown]
  - Angiopathy [Unknown]

NARRATIVE: CASE EVENT DATE: 20240101
